FAERS Safety Report 14276356 (Version 2)
Quarter: 2017Q4

REPORT INFORMATION
  Report Type: Spontaneous
  Country: GB (occurrence: GB)
  Receive Date: 20171212
  Receipt Date: 20171215
  Transmission Date: 20180321
  Serious: Yes (Death, Hospitalization)
  Sender: FDA-Public Use
  Company Number: GB-PFIZER INC-2017525939

PATIENT

DRUGS (11)
  1. MORPHINE [Suspect]
     Active Substance: MORPHINE
     Dosage: UNK
  2. DIAZEPAM. [Suspect]
     Active Substance: DIAZEPAM
     Dosage: UNK
  3. NOSCAPINE [Suspect]
     Active Substance: NOSCAPINE
     Dosage: UNK
  4. ALCOHOL. [Suspect]
     Active Substance: ALCOHOL
     Dosage: UNK
  5. CYCLIZINE [Suspect]
     Active Substance: CYCLIZINE
     Dosage: UNK
  6. PAPAVERINE [Suspect]
     Active Substance: PAPAVERINE
     Dosage: UNK
  7. DIHYDROCODEINE [Suspect]
     Active Substance: DIHYDROCODEINE
     Dosage: UNK
  8. CODEINE [Suspect]
     Active Substance: CODEINE
     Dosage: UNK
  9. CLONAZEPAM. [Suspect]
     Active Substance: CLONAZEPAM
     Dosage: UNK
  10. PREGABALIN. [Suspect]
     Active Substance: PREGABALIN
     Dosage: UNK
  11. COCAINE [Suspect]
     Active Substance: COCAINE
     Dosage: UNK

REACTIONS (1)
  - Toxicity to various agents [Fatal]
